FAERS Safety Report 8098821-X (Version None)
Quarter: 2012Q1

REPORT INFORMATION
  Report Type: 
  Country: None (occurrence: None)
  Receive Date: 20120129
  Receipt Date: 20110923
  Transmission Date: 20120608
  Serious: No
  Sender: FDA-Public Use
  Company Number: US-ABBOTT-11P-163-0857533-00

PATIENT
  Age: 60 Year
  Sex: Male

DRUGS (7)
  1. ALLEGRA [Concomitant]
     Indication: HYPERSENSITIVITY
  2. IMODIUM [Concomitant]
     Indication: PRODUCT USED FOR UNKNOWN INDICATION
  3. ACETAMINOPHEN [Concomitant]
     Indication: PRODUCT USED FOR UNKNOWN INDICATION
  4. FLONASE [Concomitant]
     Indication: PRODUCT USED FOR UNKNOWN INDICATION
     Route: 045
  5. HUMIRA [Suspect]
     Indication: CROHN'S DISEASE
     Dates: start: 20101001
  6. AZMACORT [Concomitant]
     Indication: HYPERSENSITIVITY
  7. PROAIR HFA [Concomitant]
     Indication: HYPERSENSITIVITY

REACTIONS (3)
  - PAIN [None]
  - DEVICE MALFUNCTION [None]
  - INCORRECT DOSE ADMINISTERED [None]
